FAERS Safety Report 22166090 (Version 3)
Quarter: 2023Q2

REPORT INFORMATION
  Report Type: Spontaneous
  Country: US (occurrence: US)
  Receive Date: 20230403
  Receipt Date: 20230412
  Transmission Date: 20230722
  Serious: Yes (Other)
  Sender: FDA-Public Use
  Company Number: US-PFIZER INC-PV202300057823

PATIENT
  Age: 78 Year

DRUGS (1)
  1. ZARONTIN [Suspect]
     Active Substance: ETHOSUXIMIDE
     Dosage: UNK

REACTIONS (1)
  - Seizure [Unknown]
